FAERS Safety Report 9698495 (Version 1)
Quarter: 2013Q4

REPORT INFORMATION
  Report Type: Report from Study
  Country: US (occurrence: US)
  Receive Date: 20131120
  Receipt Date: 20131120
  Transmission Date: 20140711
  Serious: Yes (Other)
  Sender: FDA-Public Use
  Company Number: US-ROCHE-1302728

PATIENT
  Sex: Female

DRUGS (12)
  1. CATHFLO ACTIVASE [Suspect]
     Indication: PRODUCT USED FOR UNKNOWN INDICATION
     Dosage: INDICATION: CLEARANCE
     Route: 065
     Dates: start: 20130729
  2. ROCEPHIN [Suspect]
     Indication: PRODUCT USED FOR UNKNOWN INDICATION
     Dosage: IVPB
     Route: 065
  3. DAPTOMYCIN [Concomitant]
     Dosage: IVPB
     Route: 065
  4. HYDROMORPHONE [Concomitant]
     Route: 048
  5. METHADONE [Concomitant]
     Route: 065
  6. NICOTINE [Concomitant]
     Route: 062
  7. ESOMEPRAZOLE [Concomitant]
     Dosage: QAM AC
     Route: 048
  8. DOCUSATE SODIUM [Concomitant]
     Route: 048
  9. SENOKOT [Concomitant]
     Dosage: 2 TABS Q EVENING.
     Route: 048
  10. LACTOBACILLUS [Concomitant]
     Route: 048
  11. ENOXAPARIN [Concomitant]
     Route: 058
  12. HEPARIN [Concomitant]
     Dosage: 30UNITS INJECTION
     Route: 065

REACTIONS (8)
  - Necrotising fasciitis [Unknown]
  - Convulsion [Unknown]
  - Constipation [Unknown]
  - Diarrhoea [Unknown]
  - Kyphosis [Unknown]
  - Arthralgia [Unknown]
  - Back pain [Unknown]
  - Scoliosis [Unknown]
